FAERS Safety Report 8339862-4 (Version None)
Quarter: 2012Q2

REPORT INFORMATION
  Report Type: 
  Country: None (occurrence: None)
  Receive Date: 20120507
  Receipt Date: 20120502
  Transmission Date: 20120825
  Serious: Yes (Death, Hospitalization)
  Sender: FDA-Public Use
  Company Number: IN-PFIZER INC-2012075236

PATIENT
  Sex: Male

DRUGS (1)
  1. SUTENT [Suspect]
     Indication: GASTROINTESTINAL STROMAL TUMOUR
     Dosage: 37.5 MG, 1X/DAY
     Route: 048
     Dates: start: 20111126, end: 20120401

REACTIONS (8)
  - MOUTH ULCERATION [None]
  - ASTHENIA [None]
  - LIVER INJURY [None]
  - DISEASE PROGRESSION [None]
  - GASTROINTESTINAL STROMAL TUMOUR [None]
  - JAUNDICE [None]
  - CONSTIPATION [None]
  - ABDOMINAL PAIN [None]
